FAERS Safety Report 5454606-1 (Version None)
Quarter: 2007Q3

REPORT INFORMATION
  Report Type: 
  Country: None (occurrence: None)
  Receive Date: 20070917
  Receipt Date: 20070531
  Transmission Date: 20080115
  Serious: Yes (Other)
  Sender: FDA-Public Use
  Company Number: US-ASTRAZENECA-2006UW11682

PATIENT
  Age: 435 Month
  Sex: Female
  Weight: 120.5 kg

DRUGS (9)
  1. SEROQUEL [Suspect]
     Indication: ANXIETY
     Route: 048
     Dates: start: 20030226, end: 20050401
  2. SEROQUEL [Suspect]
     Indication: SLEEP DISORDER
     Route: 048
     Dates: start: 20030226, end: 20050401
  3. NEURONTIN [Concomitant]
  4. KLONOPIN [Concomitant]
  5. XANAX [Concomitant]
  6. VALIUM [Concomitant]
  7. ATIVAN [Concomitant]
  8. RESTORIL [Concomitant]
  9. PROLLYNONY [Concomitant]

REACTIONS (2)
  - DIABETES MELLITUS [None]
  - DIABETIC KETOACIDOSIS [None]
